FAERS Safety Report 7538814-1 (Version None)
Quarter: 2011Q2

REPORT INFORMATION
  Report Type: 
  Country: None (occurrence: None)
  Receive Date: 20110610
  Receipt Date: 20080214
  Transmission Date: 20111010
  Serious: Yes (Other)
  Sender: FDA-Public Use
  Company Number: US-BAYER-2011-010568

PATIENT
  Age: 64 Year
  Sex: Male
  Weight: 76.599 kg

DRUGS (22)
  1. PLASMA [Concomitant]
     Dosage: 4 U, ONCE
     Route: 042
     Dates: start: 20040217
  2. INSULIN [Concomitant]
     Dosage: UNK
     Route: 042
     Dates: start: 20040317
  3. MILRINONE [Concomitant]
     Dosage: UNK
     Route: 042
     Dates: start: 20040317
  4. FACTOR VII [Concomitant]
     Dosage: UNK
     Route: 042
     Dates: start: 20040317
  5. CRYOPRECIPITATES [Concomitant]
     Dosage: 10 U, ONCE
     Route: 042
     Dates: start: 20040217
  6. TRASYLOL [Suspect]
     Indication: MITRAL VALVE REPAIR
     Dosage: 200ML FOLLOWED BY 50ML/HOUR INFUSION
     Route: 042
     Dates: start: 20040217, end: 20040217
  7. HEPARIN [Concomitant]
     Dosage: UNK
     Route: 042
     Dates: start: 20040317
  8. REGLAN [Concomitant]
     Dosage: 5MG/BEFORE MEALS AND AT BED TIME
     Route: 048
     Dates: start: 20040317
  9. FLAGYL [Concomitant]
     Dosage: 500 MG, TID
     Route: 048
     Dates: start: 20040317, end: 20040326
  10. TRASYLOL [Suspect]
     Indication: CORONARY ARTERY BYPASS
  11. NEOSYNEPHRINE [Concomitant]
     Dosage: UNK
     Route: 042
     Dates: start: 20040317
  12. METOPROLOL SUCCINATE [Concomitant]
     Dosage: 12.5 MG, BID
     Route: 048
     Dates: start: 20040317
  13. PROCRIT [Concomitant]
     Dosage: 40,000UNITS/EVERY TUESDAY
     Route: 058
     Dates: start: 20040317
  14. TRASYLOL [Suspect]
     Indication: COX-MAZE PROCEDURE
     Dosage: 1 ML INITIAL TEST DOSE
     Route: 042
     Dates: start: 20040217, end: 20040217
  15. FOLIC ACID [Concomitant]
     Dosage: 1 MG, QD
     Route: 048
     Dates: start: 20040317
  16. RED BLOOD CELLS [Concomitant]
     Dosage: 7 U, ONCE
     Route: 042
     Dates: start: 20040217
  17. FENTANYL [Concomitant]
     Dosage: UNK
     Route: 042
     Dates: start: 20040317
  18. AMIODARONE HCL [Concomitant]
     Dosage: 200 MG, QD
     Route: 048
     Dates: start: 20040317
  19. TRASYLOL [Suspect]
  20. CEFUROXIME [Concomitant]
     Dosage: UNK
     Route: 042
     Dates: start: 20040317
  21. TRASYLOL [Suspect]
     Indication: AORTIC SURGERY
  22. PLATELETS [Concomitant]
     Dosage: 16 U, ONCE
     Route: 042
     Dates: start: 20040217

REACTIONS (9)
  - EMOTIONAL DISTRESS [None]
  - STRESS [None]
  - UNEVALUABLE EVENT [None]
  - PAIN [None]
  - RENAL INJURY [None]
  - FEAR [None]
  - RENAL FAILURE [None]
  - RENAL IMPAIRMENT [None]
  - ANXIETY [None]
